FAERS Safety Report 5595406-1 (Version None)
Quarter: 2008Q1

REPORT INFORMATION
  Report Type: 
  Country: None (occurrence: None)
  Receive Date: 20080118
  Receipt Date: 20080114
  Transmission Date: 20080703
  Serious: Yes (Hospitalization, Other)
  Sender: FDA-Public Use
  Company Number: CA-JNJFOC-20070403723

PATIENT
  Sex: Female
  Weight: 78 kg

DRUGS (30)
  1. INFLIXIMAB [Suspect]
  2. INFLIXIMAB [Suspect]
  3. INFLIXIMAB [Suspect]
  4. INFLIXIMAB [Suspect]
  5. INFLIXIMAB [Suspect]
  6. INFLIXIMAB [Suspect]
     Indication: CROHN'S DISEASE
  7. METHOTREXATE [Suspect]
  8. METHOTREXATE [Suspect]
  9. METHOTREXATE [Suspect]
  10. METHOTREXATE [Suspect]
     Indication: CROHN'S DISEASE
  11. PLACEBO [Suspect]
  12. PLACEBO [Suspect]
  13. PLACEBO [Suspect]
  14. PLACEBO [Suspect]
     Indication: CROHN'S DISEASE
  15. PANTOLOC [Concomitant]
     Indication: GASTROOESOPHAGEAL REFLUX DISEASE
     Route: 048
  16. CALCIUM WITH VITAMIN D [Concomitant]
     Indication: MINERAL SUPPLEMENTATION
     Route: 048
  17. FOSAMAX [Concomitant]
     Indication: OSTEOPOROSIS
     Route: 048
  18. ATASOL [Concomitant]
     Indication: ARTHRITIS
     Route: 048
  19. ATASOL [Concomitant]
     Indication: ARTHRALGIA
     Route: 048
  20. ATASOL [Concomitant]
     Indication: ABDOMINAL PAIN
     Route: 048
  21. ADVIL LIQUI-GELS [Concomitant]
     Indication: ARTHRITIS
     Route: 048
  22. ADVIL LIQUI-GELS [Concomitant]
     Indication: ARTHRALGIA
     Route: 048
  23. ADVIL LIQUI-GELS [Concomitant]
     Indication: ABDOMINAL PAIN
     Route: 048
  24. FUCIDINE CAP [Concomitant]
     Indication: SKIN IRRITATION
     Route: 061
  25. NATURAL LAXATIVE TEA [Concomitant]
     Indication: CONSTIPATION
     Route: 048
  26. CLONAZEPAM [Concomitant]
     Indication: INSOMNIA
     Route: 048
  27. TUMS [Concomitant]
     Indication: DYSPEPSIA
     Route: 048
  28. ELOCON [Concomitant]
     Indication: SKIN LESION
     Route: 061
  29. FLONASE [Concomitant]
     Indication: COUGH
     Route: 045
  30. FLONASE [Concomitant]
     Indication: WHEEZING
     Route: 045

REACTIONS (1)
  - CHRONIC OBSTRUCTIVE PULMONARY DISEASE [None]
